FAERS Safety Report 19299337 (Version 1)
Quarter: 2021Q2

REPORT INFORMATION
  Report Type: Report from Study
  Country: None (occurrence: US)
  Receive Date: 20210525
  Receipt Date: 20210525
  Transmission Date: 20210717
  Serious: Yes (Other)
  Sender: FDA-Public Use
  Company Number: US-ABBVIE-21K-163-3919010-00

PATIENT
  Sex: Male

DRUGS (2)
  1. HUMIRA [Suspect]
     Active Substance: ADALIMUMAB
     Indication: CROHN^S DISEASE
     Route: 058
  2. HUMIRA [Suspect]
     Active Substance: ADALIMUMAB
     Route: 058

REACTIONS (6)
  - Anal fistula [Unknown]
  - Gastrointestinal pain [Recovering/Resolving]
  - Therapeutic response shortened [Not Recovered/Not Resolved]
  - Wound secretion [Recovering/Resolving]
  - Crohn^s disease [Recovering/Resolving]
  - Abdominal pain upper [Not Recovered/Not Resolved]
